FAERS Safety Report 19486309 (Version 1)
Quarter: 2021Q3

REPORT INFORMATION
  Report Type: Report from Study
  Country: IE (occurrence: IE)
  Receive Date: 20210702
  Receipt Date: 20210702
  Transmission Date: 20211014
  Serious: Yes (Hospitalization)
  Sender: FDA-Public Use
  Company Number: IE-PFIZER INC-2021739916

PATIENT
  Weight: 34.1 kg

DRUGS (30)
  1. COTRIMOXAZOLE [Concomitant]
     Active Substance: SULFAMETHOXAZOLE\TRIMETHOPRIM
     Indication: ANTIBIOTIC THERAPY
     Dosage: 480 MG, 2X/DAY
     Dates: start: 20210612
  2. CYCLIZINE [Concomitant]
     Active Substance: CYCLIZINE
     Dosage: 25 MG, 3X/DAY
     Dates: start: 20210610, end: 20210611
  3. LEVOMEPROMAZINE [Concomitant]
     Active Substance: LEVOMEPROMAZINE
     Indication: PSYCHOTIC DISORDER
     Dosage: 1 MG, 2X/DAY
     Dates: start: 20210607, end: 20210609
  4. BUSCOPAN [Concomitant]
     Active Substance: BUTYLSCOPOLAMINE BROMIDE
     Dosage: 10 MG, 3X/DAY
     Dates: start: 20210604, end: 20210604
  5. FUROSEMIDE. [Concomitant]
     Active Substance: FUROSEMIDE
     Indication: HYPERTENSION
     Dosage: 20 MG, 4X/DAY
     Dates: start: 20210605, end: 20210606
  6. NYSTATIN. [Concomitant]
     Active Substance: NYSTATIN
     Indication: ANTIFUNGAL TREATMENT
     Dosage: 1 ML, 4X/DAY
     Dates: start: 20210615
  7. ONDASETRON [ONDANSETRON] [Concomitant]
     Active Substance: ONDANSETRON
     Dosage: 6 MG, 3X/DAY
     Dates: start: 20210605
  8. NOZINAN [LEVOMEPROMAZINE] [Concomitant]
     Active Substance: LEVOMEPROMAZINE
     Indication: PSYCHOTIC DISORDER
     Dosage: 1.7 MG, 2X/DAY
     Dates: start: 20210606, end: 20210606
  9. CHLORPHENAMINE [Concomitant]
     Active Substance: CHLORPHENIRAMINE MALEATE
     Indication: ANTIALLERGIC THERAPY
     Dosage: 5 MG OTHER (8/6, 11/6, 14/6, 17/6)
     Dates: start: 20210608, end: 20210617
  10. PENTAMYCIN [Concomitant]
     Indication: ANTIBIOTIC THERAPY
  11. LEVOMEPROMAZINE [Concomitant]
     Active Substance: LEVOMEPROMAZINE
     Dosage: 3.4 MG, 2X/DAY
     Dates: start: 20210609, end: 20210617
  12. MITOXANTRONE HCL [Suspect]
     Active Substance: MITOXANTRONE HYDROCHLORIDE
     Indication: ACUTE MYELOID LEUKAEMIA
     Dosage: 14 MG/M2, 1X/DAY
     Route: 042
     Dates: start: 20210605, end: 20210608
  13. KIN [ALOE VERA;CETYLPYRIDINIUM CHLORIDE;DEXPANTHENOL;SODIUM FLUORIDE] [Concomitant]
     Indication: GINGIVITIS
     Dosage: 5 ML, 2X/DAY
     Dates: start: 20210605
  14. AMILORIDE [Concomitant]
     Active Substance: AMILORIDE
     Indication: HYPERTENSION
     Dosage: 5 MG, 2X/DAY
     Dates: start: 20210610
  15. HYDROCORTISONE. [Concomitant]
     Active Substance: HYDROCORTISONE
     Indication: ADRENOCORTICAL INSUFFICIENCY ACUTE
     Dosage: 100 MG (8/6, 11,6 AND 14,6)
     Dates: start: 20210608, end: 20210614
  16. OXYNORM [Concomitant]
     Active Substance: OXYCODONE HYDROCHLORIDE
     Dosage: 5 MG, OTHER EVERY 4 HRS
     Dates: start: 20210605, end: 20210606
  17. OXYNORM [Concomitant]
     Active Substance: OXYCODONE HYDROCHLORIDE
     Dosage: 5 MG, OTHER EVERY 4 HRS
     Dates: start: 20210615
  18. AMBISOME [Concomitant]
     Active Substance: AMPHOTERICIN B
     Indication: ANTIFUNGAL TREATMENT
     Dosage: 34 MG, 1X/DAY (EVERY 24HRS)
     Dates: start: 20210608, end: 20210617
  19. ONDASETRON [ONDANSETRON] [Concomitant]
     Active Substance: ONDANSETRON
     Indication: ANTIEMETIC SUPPORTIVE CARE
     Dosage: 3.4 MG, 2X/DAY
     Dates: start: 20210605, end: 20210605
  20. PARACETAMOL [Concomitant]
     Active Substance: ACETAMINOPHEN
     Indication: PAIN
  21. OXYNORM [Concomitant]
     Active Substance: OXYCODONE HYDROCHLORIDE
     Indication: PAIN
     Dosage: 2.5 MG, OTHER EVERY 4 HRS
     Dates: start: 20210605, end: 20210605
  22. GEMTUZUMAB OZOGAMICIN [Suspect]
     Active Substance: GEMTUZUMAB OZOGAMICIN
     Indication: ACUTE MYELOID LEUKAEMIA
     Dosage: 3.5 MG,OTHER
     Route: 042
     Dates: start: 20210608, end: 20210614
  23. PENTAMYCIN [Concomitant]
     Indication: ANTIFUNGAL TREATMENT
     Dosage: 232 MG, 1X/DAY
     Dates: start: 20210616
  24. CYCLIZINE [Concomitant]
     Active Substance: CYCLIZINE
     Indication: PROPHYLAXIS OF NAUSEA AND VOMITING
     Dosage: 25 MG, 3X/DAY
     Dates: start: 20210605, end: 20210607
  25. ESOMEPRAZOLE. [Concomitant]
     Active Substance: ESOMEPRAZOLE MAGNESIUM
     Indication: ACIDOSIS
     Dosage: 20 MG, 1X/DAY
     Dates: start: 20210615, end: 20210615
  26. LORAZEPAM. [Concomitant]
     Active Substance: LORAZEPAM
     Indication: ANTIEMETIC SUPPORTIVE CARE
     Dosage: 0.5 MG, 2X/DAY
     Dates: start: 20210607, end: 20210609
  27. TAZOCIN [Concomitant]
     Active Substance: PIPERACILLIN SODIUM\TAZOBACTAM SODIUM
     Indication: ANTIBIOTIC THERAPY
     Dosage: 3 G, 4X/DAY (EVERY 6HRS)
     Dates: start: 20210604
  28. OROMORPH [Concomitant]
     Indication: DYSPNOEA
     Dosage: 6 MG, EVERY 4?6HRS
     Dates: start: 20210603, end: 20210605
  29. PARACETAMOL [Concomitant]
     Active Substance: ACETAMINOPHEN
     Indication: PYREXIA
     Dosage: 510 MG, OTHER (EVERY 4?6 HRS)
     Dates: start: 20210605
  30. HEPARIN SODIUM. [Concomitant]
     Active Substance: HEPARIN SODIUM
     Indication: ANTICOAGULANT THERAPY
     Dosage: 2.5 ML, OTHER
     Dates: start: 20210613

REACTIONS (1)
  - Febrile neutropenia [Not Recovered/Not Resolved]

NARRATIVE: CASE EVENT DATE: 20210617
